FAERS Safety Report 16708915 (Version 1)
Quarter: 2019Q3

REPORT INFORMATION
  Report Type: Spontaneous
  Country: AT (occurrence: AT)
  Receive Date: 20190816
  Receipt Date: 20190816
  Transmission Date: 20191004
  Serious: Yes (Death)
  Sender: FDA-Public Use
  Company Number: AT-009507513-1908AUT004987

PATIENT
  Age: 60 Year
  Sex: Female
  Weight: 80 kg

DRUGS (3)
  1. DICLOBENE [Suspect]
     Active Substance: DICLOFENAC SODIUM
     Indication: ABDOMINAL PAIN
     Dosage: 150 MILLIGRAM, QD,  2 X 75 MG I.V, VIAL
     Route: 042
     Dates: start: 20190719, end: 20190721
  2. IVERMECTIN. [Suspect]
     Active Substance: IVERMECTIN
     Indication: ACARODERMATITIS
     Dosage: 12 MILLIGRAM, (TOTAL), 4 PIECES
     Route: 048
     Dates: start: 20190719, end: 20190719
  3. MONTELUKAST SODIUM. [Suspect]
     Active Substance: MONTELUKAST SODIUM
     Indication: ASTHMA
     Dosage: 5 MG 1X, ONGOING
     Route: 048

REACTIONS (2)
  - Acute hepatic failure [Fatal]
  - Hepatotoxicity [Fatal]

NARRATIVE: CASE EVENT DATE: 20190721
